FAERS Safety Report 13619004 (Version 2)
Quarter: 2017Q3

REPORT INFORMATION
  Report Type: Spontaneous
  Country: US (occurrence: US)
  Receive Date: 20170606
  Receipt Date: 20170922
  Transmission Date: 20171127
  Serious: No
  Sender: FDA-Public Use
  Company Number: US-AMGEN-USASP2017075561

PATIENT
  Age: 47 Year
  Sex: Female

DRUGS (5)
  1. PROCRIT [Suspect]
     Active Substance: ERYTHROPOIETIN
     Indication: RED BLOOD CELL COUNT DECREASED
     Dosage: UNK UNK, QWK (EVERY MONDAY)
     Route: 065
     Dates: start: 2017
  2. NEUPOGEN [Suspect]
     Active Substance: FILGRASTIM
     Indication: WHITE BLOOD CELL COUNT DECREASED
     Dosage: UNK UNK, 2 TIMES/WK (EVERY MONDAY AND TUESDAY)
     Route: 065
     Dates: start: 2017
  3. FASLODEX [Concomitant]
     Active Substance: FULVESTRANT
     Dosage: UNK UNK, QMO
     Dates: start: 201702
  4. PROCRIT [Suspect]
     Active Substance: ERYTHROPOIETIN
     Indication: HAEMOGLOBIN DECREASED
  5. IBRANCE [Concomitant]
     Active Substance: PALBOCICLIB
     Dosage: 125 MG, QD (FOR 21 DAYS ON/ 7 DAYS OFF)
     Dates: start: 20170205

REACTIONS (4)
  - Asthenia [Unknown]
  - Nausea [Unknown]
  - Myalgia [Unknown]
  - Bone pain [Unknown]

NARRATIVE: CASE EVENT DATE: 2017
